FAERS Safety Report 6195119-1 (Version None)
Quarter: 2009Q2

REPORT INFORMATION
  Report Type: 
  Country: None (occurrence: None)
  Receive Date: 20090519
  Receipt Date: 20090504
  Transmission Date: 20091009
  Serious: Yes (Other)
  Sender: FDA-Public Use
  Company Number: FR-ROCHE-631368

PATIENT
  Age: 40 Year
  Sex: Male

DRUGS (10)
  1. PEGASYS [Suspect]
     Indication: HEPATITIS C
     Route: 058
     Dates: start: 20090205
  2. COPEGUS [Suspect]
     Indication: HEPATITIS C
     Route: 048
     Dates: start: 20090205
  3. NEORECORMON [Suspect]
     Route: 065
  4. RIVOTRIL [Concomitant]
  5. SERESTA [Concomitant]
  6. MEPRONIZINE [Concomitant]
  7. ZOLOFT [Concomitant]
  8. LEPTICUR [Concomitant]
  9. LOXAPAC [Concomitant]
  10. METHADONE [Concomitant]

REACTIONS (3)
  - ANAEMIA [None]
  - FATIGUE [None]
  - PHLEBITIS [None]
